FAERS Safety Report 13523555 (Version 1)
Quarter: 2017Q2

REPORT INFORMATION
  Report Type: Spontaneous
  Country: US (occurrence: US)
  Receive Date: 20170508
  Receipt Date: 20170508
  Transmission Date: 20170830
  Serious: No
  Sender: FDA-Public Use
  Company Number: US-VIFOR (INTERNATIONAL) INC.-VIT-2017-01889

PATIENT
  Age: 61 Year
  Sex: Male

DRUGS (19)
  1. AMITIZA [Concomitant]
     Active Substance: LUBIPROSTONE
  2. CILOSTAZOL. [Concomitant]
     Active Substance: CILOSTAZOL
  3. ERGOCALCIFEROL. [Concomitant]
     Active Substance: ERGOCALCIFEROL
  4. METOPROLOL. [Concomitant]
     Active Substance: METOPROLOL
  5. NEURONTIN [Concomitant]
     Active Substance: GABAPENTIN
  6. ZETIA [Concomitant]
     Active Substance: EZETIMIBE
  7. PROTONIX [Concomitant]
     Active Substance: PANTOPRAZOLE SODIUM
  8. TRESIBA [Concomitant]
     Active Substance: INSULIN DEGLUDEC
  9. MIRALAX [Concomitant]
     Active Substance: POLYETHYLENE GLYCOL 3350
  10. NOVOLOG [Concomitant]
     Active Substance: INSULIN ASPART
  11. MAGNESIUM [Concomitant]
     Active Substance: MAGNESIUM
  12. VELTASSA [Suspect]
     Active Substance: PATIROMER
     Indication: HYPERKALAEMIA
     Route: 048
     Dates: start: 20160619
  13. ACETYLSALICYLIC ACID [Concomitant]
     Active Substance: ASPIRIN
  14. CARBAMAZEPINE. [Concomitant]
     Active Substance: CARBAMAZEPINE
  15. PROAIR HFA [Concomitant]
     Active Substance: ALBUTEROL SULFATE
  16. LOPID [Concomitant]
     Active Substance: GEMFIBROZIL
  17. PATADAY [Concomitant]
     Active Substance: OLOPATADINE HYDROCHLORIDE
  18. LUMIGAN [Concomitant]
     Active Substance: BIMATOPROST
  19. SPIRIVA [Concomitant]
     Active Substance: TIOTROPIUM BROMIDE MONOHYDRATE

REACTIONS (4)
  - Gastroenteritis viral [Unknown]
  - Vomiting [Unknown]
  - Drug dose omission [Unknown]
  - Constipation [Unknown]

NARRATIVE: CASE EVENT DATE: 201612
